FAERS Safety Report 9967062 (Version 1)
Quarter: 2014Q1

REPORT INFORMATION
  Report Type: Report from Study
  Country: NL (occurrence: NL)
  Receive Date: 20140305
  Receipt Date: 20140305
  Transmission Date: 20141002
  Serious: Yes (Other)
  Sender: FDA-Public Use
  Company Number: NL-MERCK-1403NLD000358

PATIENT
  Age: 33 Year
  Sex: Male

DRUGS (7)
  1. BOCEPREVIR [Suspect]
     Indication: HEPATITIS C
     Dosage: TID, TOTAL DAILY DOSE 2400 MG
     Route: 048
     Dates: start: 20131223
  2. PEGINTERFERON ALFA-2B [Suspect]
     Indication: HEPATITIS C
     Dosage: 100 MICROGRAM, QW
     Route: 058
     Dates: start: 20131223
  3. RIBAVIRIN [Suspect]
     Indication: HEPATITIS C
     Dosage: BID, TOTAL DAILY DOSE 1000 MG
     Route: 048
     Dates: start: 20131223
  4. ISENTRESS [Concomitant]
     Indication: HIV INFECTION
     Dosage: BID, TOTAL DAILY DOSE 800 MG
     Route: 048
  5. TRUVADA [Concomitant]
     Indication: HIV INFECTION
     Dosage: QD, TOTAL DAILY DOSE 200/245
  6. ESCITALOPRAM [Concomitant]
     Indication: DEPRESSION
     Dosage: QD, TOTAL DAILY DOSE 3 MG
     Route: 048
  7. AMITRIPTYLINE HYDROCHLORIDE [Concomitant]
     Indication: DEPRESSION
     Dosage: QD, TOTAL DAILY DOSE 10MG
     Route: 048

REACTIONS (1)
  - Transient ischaemic attack [Unknown]
